FAERS Safety Report 8080513-4 (Version None)
Quarter: 2012Q1

REPORT INFORMATION
  Report Type: 
  Country: None (occurrence: None)
  Receive Date: 20120130
  Receipt Date: 20120125
  Transmission Date: 20120608
  Serious: No
  Sender: FDA-Public Use
  Company Number: US-PFIZER INC-2012021102

PATIENT
  Sex: Female
  Weight: 102 kg

DRUGS (10)
  1. TIKOSYN [Suspect]
     Indication: HEART RATE IRREGULAR
     Dosage: 0.125 MG, 2X/DAY
     Route: 048
     Dates: start: 20110401
  2. PROZAC [Concomitant]
     Dosage: UNK
  3. AMLODIPINE [Concomitant]
     Dosage: 10 MG, UNK
  4. FISH OIL [Concomitant]
     Dosage: UNK
  5. HYDROCHLOROTHIAZIDE [Concomitant]
     Dosage: UNK
  6. KLOR-CON [Concomitant]
     Dosage: UNK
  7. TIKOSYN [Suspect]
     Dosage: 0.250 MG, 1X/DAY
     Route: 048
  8. ESKALITH [Concomitant]
     Dosage: UNK
  9. ESTRADIOL [Concomitant]
     Dosage: UNK
  10. GLUCOSAMINE [Concomitant]
     Dosage: UNK

REACTIONS (2)
  - VOMITING [None]
  - NAUSEA [None]
